FAERS Safety Report 25755756 (Version 1)
Quarter: 2025Q3

REPORT INFORMATION
  Report Type: Report from Study
  Country: US (occurrence: US)
  Receive Date: 20250903
  Receipt Date: 20250903
  Transmission Date: 20251021
  Serious: Yes (Death)
  Sender: ALEXION PHARMACEUTICALS
  Company Number: US-AstraZeneca-CH-00942220A

PATIENT
  Age: 61 Year
  Sex: Female
  Weight: 65.76 kg

DRUGS (1)
  1. OSIMERTINIB [Suspect]
     Active Substance: OSIMERTINIB
     Dosage: 40 MILLIGRAM, QD
     Route: 065

REACTIONS (1)
  - Death [Fatal]

NARRATIVE: CASE EVENT DATE: 20250622
